FAERS Safety Report 8888556 (Version 3)
Quarter: 2012Q4

REPORT INFORMATION
  Report Type: 
  Country: JP (occurrence: JP)
  Receive Date: 20121106
  Receipt Date: 20121226
  Transmission Date: 20130627
  Serious: Yes (Other)
  Sender: FDA-Public Use
  Company Number: PHHY2012JP100631

PATIENT
  Age: 56 Year
  Sex: Female

DRUGS (9)
  1. FEMARA [Suspect]
     Indication: INFLAMMATORY CARCINOMA OF THE BREAST
     Dosage: UNK UKN, UNK
     Route: 048
  2. ZOMETA [Concomitant]
     Indication: METASTASES TO BONE
     Dosage: UNK UKN, UNK
     Route: 041
  3. TRASTUZUMAB [Concomitant]
     Indication: INFLAMMATORY CARCINOMA OF THE BREAST
     Dosage: UNK UKN, UNK
     Route: 041
  4. EPIRUBICIN HYDROCHLORIDE [Concomitant]
     Indication: INFLAMMATORY CARCINOMA OF THE BREAST
     Dosage: UNK UKN, UNK
     Route: 042
  5. CYCLOPHOSPHAMIDE MONOHYDRATE [Concomitant]
     Indication: INFLAMMATORY CARCINOMA OF THE BREAST
     Dosage: UNK UKN, UNK
     Route: 042
  6. PACLITAXEL [Concomitant]
     Indication: INFLAMMATORY CARCINOMA OF THE BREAST
     Dosage: UNK UKN, UNK
     Route: 041
  7. MS CONTIN [Concomitant]
     Indication: PAIN
     Route: 048
  8. FENTANYL [Concomitant]
     Indication: PAIN
     Dosage: UNK UKN, UNK
     Route: 062
  9. GEMCITABINE [Concomitant]
     Indication: INFLAMMATORY CARCINOMA OF THE BREAST
     Dosage: UNK UKN, UNK
     Route: 041

REACTIONS (4)
  - Bone marrow failure [Unknown]
  - Cardiotoxicity [Unknown]
  - Metastases to bone [Unknown]
  - Breast cancer recurrent [Unknown]
